FAERS Safety Report 7623600-4 (Version None)
Quarter: 2011Q3

REPORT INFORMATION
  Report Type: 
  Country: None (occurrence: None)
  Receive Date: 20110720
  Receipt Date: 20110705
  Transmission Date: 20111222
  Serious: Yes (Other)
  Sender: FDA-Public Use
  Company Number: JP-WATSON-2011-10626

PATIENT
  Age: 71 Year
  Sex: Male

DRUGS (1)
  1. CABERGOLINE (UNKNOWN) [Suspect]
     Indication: PARKINSON'S DISEASE
     Route: 065

REACTIONS (3)
  - RESPIRATORY FAILURE [None]
  - PLEURISY [None]
  - PULMONARY FIBROSIS [None]
